FAERS Safety Report 6572610-7 (Version None)
Quarter: 2010Q1

REPORT INFORMATION
  Report Type: 
  Country: None (occurrence: None)
  Receive Date: 20100205
  Receipt Date: 20100121
  Transmission Date: 20100710
  Serious: Yes (Other)
  Sender: FDA-Public Use
  Company Number: CHPA2010US01731

PATIENT
  Age: 56 Year
  Sex: Female

DRUGS (4)
  1. VOLTAREN [Suspect]
     Indication: ARTHRALGIA
     Dosage: 2 G, BID
     Route: 061
     Dates: start: 20100120, end: 20100120
  2. VOLTAREN [Suspect]
     Dosage: 2 G, QD
     Route: 061
     Dates: start: 20100121, end: 20100121
  3. KLONOPIN [Concomitant]
     Dosage: UNK, BID
     Route: 048
  4. SYNTHROID [Concomitant]

REACTIONS (9)
  - ABDOMINAL PAIN UPPER [None]
  - APPLICATION SITE ERYTHEMA [None]
  - APPLICATION SITE RASH [None]
  - CROHN'S DISEASE [None]
  - DIARRHOEA [None]
  - DRUG ADMINISTERED AT INAPPROPRIATE SITE [None]
  - FATIGUE [None]
  - GASTRITIS [None]
  - NAUSEA [None]
